FAERS Safety Report 7654737 (Version 3)
Quarter: 2018Q3

REPORT INFORMATION
  Report Type: Spontaneous
  Country: FR (occurrence: FR)
  Receive Date: 20101103
  Receipt Date: 20180925
  Transmission Date: 20181010
  Serious: Yes (Death, Life-Threatening, Hospitalization)
  Sender: FDA-Public Use
  Company Number: FR-PFIZER INC-2010134404

PATIENT
  Age: 38 Year
  Sex: Male

DRUGS (15)
  1. VANCOMYCIN [Concomitant]
     Active Substance: VANCOMYCIN
     Indication: BACTERAEMIA
     Dosage: UNK
     Dates: start: 20100624, end: 20100706
  2. TIENAM [Suspect]
     Active Substance: CILASTATIN SODIUM\IMIPENEM
     Dosage: 500 MG, DAILY
     Route: 042
     Dates: start: 20100703, end: 20100706
  3. ZOPHREN [Suspect]
     Active Substance: ONDANSETRON
     Indication: PREMEDICATION
     Dosage: 8 MG, SINGLE
     Route: 048
     Dates: start: 20100630, end: 20100630
  4. GEMZAR [Concomitant]
     Active Substance: GEMCITABINE HYDROCHLORIDE
     Indication: RENAL CANCER METASTATIC
     Dosage: 200 MG, CYCLIC
     Dates: start: 20100630, end: 20100707
  5. KAYEXALATE [Concomitant]
     Active Substance: SODIUM POLYSTYRENE SULFONATE
     Dosage: UNK
  6. EMEND [Concomitant]
     Active Substance: APREPITANT
     Indication: PREMEDICATION
     Dosage: UNK
     Dates: start: 20100630, end: 20100702
  7. CORTANCYL [Concomitant]
     Active Substance: PREDNISONE
     Dosage: UNK
  8. TIENAM [Suspect]
     Active Substance: CILASTATIN SODIUM\IMIPENEM
     Indication: BACTERAEMIA
     Dosage: 500 MG, 2X/DAY
     Route: 042
     Dates: start: 20100609, end: 20100701
  9. CISPLATIN. [Concomitant]
     Active Substance: CISPLATIN
     Indication: RENAL CANCER METASTATIC
     Dosage: 66 MG, CYCLIC
     Dates: start: 20100630, end: 20100630
  10. GENTAMICIN. [Concomitant]
     Active Substance: GENTAMICIN
     Indication: BACTERAEMIA
     Dosage: UNK
     Dates: start: 20100609, end: 20100706
  11. KESTIN [Concomitant]
     Active Substance: EBASTINE
     Dosage: UNK
  12. DOLIPRANE [Concomitant]
     Active Substance: ACETAMINOPHEN
     Dosage: UNK
  13. XYZAL [Concomitant]
     Active Substance: LEVOCETIRIZINE DIHYDROCHLORIDE
     Dosage: UNK
  14. LYRICA [Suspect]
     Active Substance: PREGABALIN
     Indication: PAIN
     Dosage: 50 MG, 1X/DAY
     Route: 048
     Dates: start: 20100624, end: 20100701
  15. ASPEGIC [Concomitant]
     Active Substance: ASPIRIN DL-LYSINE
     Dosage: UNK

REACTIONS (2)
  - Generalised tonic-clonic seizure [Fatal]
  - Seizure [Fatal]

NARRATIVE: CASE EVENT DATE: 20100701
